FAERS Safety Report 4877572-6 (Version None)
Quarter: 2006Q1

REPORT INFORMATION
  Report Type: 
  Country: None (occurrence: None)
  Receive Date: 20060109
  Receipt Date: 20051227
  Transmission Date: 20060701
  Serious: Yes (Hospitalization, Other)
  Sender: FDA-Public Use
  Company Number: 2006000464

PATIENT
  Age: 58 Year
  Sex: Female
  Weight: 77.1115 kg

DRUGS (7)
  1. GEODON [Suspect]
     Indication: ANXIETY
     Dosage: 80 MG (40 MG, 2 IN 1 D), ORAL;  UNK, INTRAMUSCULAR
     Route: 048
     Dates: start: 20050101
  2. RESTORIL [Concomitant]
  3. LEVOXYL [Concomitant]
  4. LISINOPRIL [Concomitant]
  5. CLIMARA [Concomitant]
  6. CYMBALTA (DULOXETINE HYUDROCHLORIDE) [Concomitant]
  7. PROZAC [Concomitant]

REACTIONS (6)
  - DIARRHOEA [None]
  - DRUG DEPENDENCE [None]
  - GASTRITIS [None]
  - NAUSEA [None]
  - VOMITING [None]
  - WEIGHT DECREASED [None]
